FAERS Safety Report 9436322 (Version 1)
Quarter: 2013Q3

REPORT INFORMATION
  Report Type: Spontaneous
  Country: US (occurrence: US)
  Receive Date: 20130802
  Receipt Date: 20130802
  Transmission Date: 20140515
  Serious: Yes (Hospitalization)
  Sender: FDA-Public Use
  Company Number: US-BIOGENIDEC-2013BI068249

PATIENT
  Age: 49 Year
  Sex: Female

DRUGS (6)
  1. TECFIDERA [Suspect]
     Indication: MULTIPLE SCLEROSIS
     Route: 048
  2. ATIVAN [Concomitant]
  3. DIAZEPAM [Concomitant]
  4. NORCO [Concomitant]
  5. WELLBUTRIN [Concomitant]
  6. SOMA [Concomitant]

REACTIONS (3)
  - Urticaria [Unknown]
  - Rash [Unknown]
  - Dyspnoea [Unknown]
